FAERS Safety Report 8983910 (Version 1)
Quarter: 2012Q4

REPORT INFORMATION
  Report Type: Spontaneous
  Country: US (occurrence: None)
  Receive Date: 20121218
  Receipt Date: 20121218
  Transmission Date: 20130627
  Serious: Yes (Hospitalization, Other)
  Sender: FDA-Public Use
  Company Number: None

PATIENT

DRUGS (1)
  1. SYMBICORT [Suspect]

REACTIONS (3)
  - Tachycardia [None]
  - Bronchospasm [None]
  - Atrial fibrillation [None]
